FAERS Safety Report 6311839 (Version 2)
Quarter: 2012Q4

REPORT INFORMATION
  Report Type: 
  Country: US (occurrence: US)
  Receive Date: 20070514
  Receipt Date: 20121016
  Transmission Date: 20130627
  Serious: Yes (Other)
  Sender: FDA-Public Use
  Company Number: US-PFIZER INC-2007028994

PATIENT
  Age: 84 Year
  Sex: Female
  Weight: 51.71 kg

DRUGS (10)
  1. LYRICA [Suspect]
     Indication: NEUROPATHY PERIPHERAL
     Dosage: 25mg in morning and 50mg at night
     Dates: start: 20070211
  2. LYRICA [Suspect]
     Indication: POLYNEUROPATHY
     Dosage: 50 mg, 2x/day
     Route: 048
  3. VASOTEC [Concomitant]
     Indication: HYPERTENSION
     Dosage: UNK
  4. TOPROL XL [Concomitant]
     Indication: HYPERTENSION
     Dosage: UNK
  5. BENICAR [Concomitant]
     Dosage: UNK
  6. LEVOXYL [Concomitant]
     Dosage: UNK
  7. MEVACOR [Concomitant]
     Indication: BLOOD CHOLESTEROL INCREASED
     Dosage: UNK
  8. SORAFENIB [Concomitant]
     Dosage: UNK
  9. AZOR [Concomitant]
     Indication: HYPERTENSION
     Dosage: UNK
  10. FORTEO [Concomitant]
     Indication: OSTEOPOROSIS
     Dosage: UNK

REACTIONS (9)
  - Anaemia [Unknown]
  - Blood urea increased [Unknown]
  - Weight increased [Not Recovered/Not Resolved]
  - Glucose tolerance test abnormal [Unknown]
  - Oedema peripheral [Not Recovered/Not Resolved]
  - Joint swelling [Not Recovered/Not Resolved]
  - Myalgia [Not Recovered/Not Resolved]
  - Abdominal distension [Not Recovered/Not Resolved]
  - Lipids decreased [Unknown]
